FAERS Safety Report 13180028 (Version 1)
Quarter: 2017Q1

REPORT INFORMATION
  Report Type: Spontaneous
  Country: FR (occurrence: FR)
  Receive Date: 20170202
  Receipt Date: 20170202
  Transmission Date: 20170428
  Serious: Yes (Other)
  Sender: FDA-Public Use
  Company Number: FR-ACORDA-ACO_128875_2016

PATIENT
  Sex: Female
  Weight: 55 kg

DRUGS (1)
  1. QUTENZA [Suspect]
     Active Substance: CAPSAICIN
     Indication: PRODUCT USED FOR UNKNOWN INDICATION
     Dosage: UNK UNK, UNKNOWN FREQ.
     Route: 065

REACTIONS (7)
  - Glossitis [Unknown]
  - Dyspnoea [Unknown]
  - Chest discomfort [Unknown]
  - Occupational exposure to product [Unknown]
  - Stomatitis [Unknown]
  - Throat irritation [Unknown]
  - Paraesthesia oral [Unknown]
